FAERS Safety Report 14637916 (Version 1)
Quarter: 2018Q1

REPORT INFORMATION
  Report Type: Spontaneous
  Country: US (occurrence: US)
  Receive Date: 20180313
  Receipt Date: 20180313
  Transmission Date: 20180509
  Serious: No
  Sender: FDA-Public Use
  Company Number: None

PATIENT
  Age: 53 Year
  Sex: Female
  Weight: 61.65 kg

DRUGS (3)
  1. FLORJEN3 PROBIOTICS [Concomitant]
  2. AMOX-CLAV 875MG [Suspect]
     Active Substance: AMOXICILLIN\CLAVULANATE POTASSIUM
     Indication: SINUSITIS
     Dosage: ?          QUANTITY:20 TABLET(S);?
     Route: 048
     Dates: start: 20180305, end: 20180311
  3. PREDNISONE. [Concomitant]
     Active Substance: PREDNISONE

REACTIONS (4)
  - Tendonitis [None]
  - Pain [None]
  - Musculoskeletal pain [None]
  - Therapy cessation [None]

NARRATIVE: CASE EVENT DATE: 20180309
